FAERS Safety Report 9543527 (Version 2)
Quarter: 2013Q4

REPORT INFORMATION
  Report Type: Spontaneous
  Country: US (occurrence: US)
  Receive Date: 20130923
  Receipt Date: 20131018
  Transmission Date: 20140711
  Serious: Yes (Other)
  Sender: FDA-Public Use
  Company Number: US-PFIZER INC-2013272615

PATIENT
  Age: 52 Year
  Sex: Male
  Weight: 80.73 kg

DRUGS (6)
  1. RELPAX [Suspect]
     Indication: MIGRAINE
     Dosage: 40 MG, AS NEEDED
     Route: 048
     Dates: start: 2012
  2. PROAIR HFA [Concomitant]
     Dosage: UNK
  3. ADVAIR HFA [Concomitant]
     Dosage: UNK
  4. ALBUTEROL [Concomitant]
     Dosage: UNK (THREE TO FOUR TIMES A DAY)
  5. GLUCOTROL XL [Concomitant]
     Dosage: UNK
  6. LIPITOR [Concomitant]
     Dosage: UNK

REACTIONS (1)
  - Migraine [Not Recovered/Not Resolved]
